FAERS Safety Report 8599647-0 (Version None)
Quarter: 2012Q3

REPORT INFORMATION
  Report Type: 
  Country: None (occurrence: None)
  Receive Date: 20120816
  Receipt Date: 20120807
  Transmission Date: 20120928
  Serious: Yes (Hospitalization)
  Sender: FDA-Public Use
  Company Number: JP-ALLERGAN-1210798US

PATIENT
  Age: 3 Year
  Sex: Female

DRUGS (3)
  1. BOTOX [Suspect]
     Indication: CEREBRAL PALSY
     Dosage: 160 UNITS, SINGLE
     Route: 030
     Dates: start: 20120801, end: 20120801
  2. THIOPENTAL SODIUM [Concomitant]
     Indication: SEDATION
  3. DIPRIVAN [Concomitant]
     Indication: SEDATION
     Dosage: UNK UNK, SINGLE

REACTIONS (2)
  - INCREASED TENDENCY TO BRUISE [None]
  - THROMBOCYTOPENIA [None]
